FAERS Safety Report 7106283-1 (Version None)
Quarter: 2010Q4

REPORT INFORMATION
  Report Type: 
  Country: None (occurrence: None)
  Receive Date: 20101116
  Receipt Date: 20101031
  Transmission Date: 20110411
  Serious: Yes (Hospitalization)
  Sender: FDA-Public Use
  Company Number: PHHO2010PL16569

PATIENT
  Sex: Male
  Weight: 74 kg

DRUGS (3)
  1. ALISKIREN ALI+TAB [Suspect]
     Indication: ACUTE MYOCARDIAL INFARCTION
     Dosage: 150MG
     Route: 048
     Dates: start: 20090109
  2. ASPIRIN [Suspect]
     Dosage: UNK
     Dates: start: 20100311, end: 20100928
  3. CLOPIDOGREL [Suspect]
     Indication: MYOCARDIAL INFARCTION
     Dosage: UNK
     Dates: start: 20100326, end: 20100928

REACTIONS (5)
  - ANAEMIA [None]
  - DUODENAL ULCER [None]
  - GASTRITIS [None]
  - GASTROINTESTINAL HAEMORRHAGE [None]
  - MUCOUS MEMBRANE DISORDER [None]
